FAERS Safety Report 13875146 (Version 1)
Quarter: 2017Q3

REPORT INFORMATION
  Report Type: Spontaneous
  Country: ES (occurrence: ES)
  Receive Date: 20170816
  Receipt Date: 20170816
  Transmission Date: 20171127
  Serious: Yes (Hospitalization)
  Sender: FDA-Public Use
  Company Number: ES-ASTRAZENECA-2017SE82122

PATIENT
  Age: 58 Year
  Sex: Female

DRUGS (3)
  1. SEROQUEL [Suspect]
     Active Substance: QUETIAPINE FUMARATE
     Dosage: DAILY
     Route: 048
     Dates: start: 20151217
  2. ABILIFY [Suspect]
     Active Substance: ARIPIPRAZOLE
     Dosage: MONTHLY
     Route: 030
     Dates: start: 20170615, end: 20170615
  3. ABILIFY [Suspect]
     Active Substance: ARIPIPRAZOLE
     Dosage: MONTHLY
     Route: 030
     Dates: start: 201512

REACTIONS (2)
  - Paranoia [Not Recovered/Not Resolved]
  - Dystonia [Recovering/Resolving]

NARRATIVE: CASE EVENT DATE: 20170622
